FAERS Safety Report 5970275-6 (Version None)
Quarter: 2008Q4

REPORT INFORMATION
  Report Type: 
  Country: None (occurrence: None)
  Receive Date: 20081126
  Receipt Date: 20081119
  Transmission Date: 20090506
  Serious: Yes (Hospitalization)
  Sender: FDA-Public Use
  Company Number: CH-PFIZER INC-2008098554

PATIENT
  Sex: Male

DRUGS (10)
  1. IRINOTECAN HCL [Suspect]
     Indication: COLORECTAL CANCER
     Route: 042
     Dates: start: 20080630, end: 20080915
  2. IRINOTECAN HCL [Suspect]
     Route: 042
     Dates: start: 20081013
  3. FLUOROURACIL [Suspect]
     Indication: COLORECTAL CANCER
     Route: 042
     Dates: start: 20080623, end: 20080922
  4. FLUOROURACIL [Suspect]
     Route: 042
     Dates: start: 20081013
  5. OXALIPLATIN [Suspect]
     Indication: COLORECTAL CANCER
     Route: 042
     Dates: start: 20080623
  6. CETUXIMAB [Suspect]
     Indication: COLORECTAL CANCER
     Route: 042
     Dates: start: 20080623, end: 20080922
  7. CETUXIMAB [Suspect]
     Dosage: DAILY DOSE:250MG/M2-FREQ:1 IN 1 WEEK
     Route: 042
     Dates: start: 20081013
  8. BEVACIZUMAB [Suspect]
     Indication: COLORECTAL CANCER
     Route: 042
     Dates: start: 20080623
  9. LEUCOVORIN CALCIUM [Suspect]
     Indication: COLORECTAL CANCER
     Dosage: DAILY DOSE:30MG-FREQ:4 IN 5 WEEKS
     Route: 042
     Dates: start: 20080623, end: 20080922
  10. LEUCOVORIN CALCIUM [Suspect]
     Dosage: DAILY DOSE:30MG-FREQ:4 IN 5 WEEKS
     Route: 042
     Dates: start: 20081013

REACTIONS (2)
  - C-REACTIVE PROTEIN INCREASED [None]
  - DIARRHOEA [None]
